FAERS Safety Report 4277707-2 (Version None)
Quarter: 2004Q1

REPORT INFORMATION
  Report Type: 
  Country: None (occurrence: None)
  Receive Date: 20040121
  Receipt Date: 20040105
  Transmission Date: 20041129
  Serious: Yes (Disabling, Other)
  Sender: FDA-Public Use
  Company Number: 8004879

PATIENT
  Age: 91 Year
  Sex: Male

DRUGS (6)
  1. KEPPRA [Suspect]
     Indication: METASTASES TO CENTRAL NERVOUS SYSTEM
     Dosage: 1000 MG 2/D PO
     Route: 048
     Dates: start: 20031026, end: 20031124
  2. KEPPRA [Suspect]
     Indication: ON AND OFF PHENOMENON
     Dosage: 1000 MG 2/D PO
     Route: 048
     Dates: start: 20031026, end: 20031124
  3. MILLICORTEN [Concomitant]
  4. NEXIUM [Concomitant]
  5. FRAXIPARINE [Concomitant]
  6. STILNOX [Concomitant]

REACTIONS (1)
  - THROMBOCYTOPENIA [None]
